FAERS Safety Report 25763674 (Version 1)
Quarter: 2025Q3

REPORT INFORMATION
  Report Type: Spontaneous
  Country: US (occurrence: US)
  Receive Date: 20250905
  Receipt Date: 20250905
  Transmission Date: 20251020
  Serious: No
  Sender: DOMPE FARMACEUTICI
  Company Number: US-FARMAPROD-202410-3651

PATIENT
  Sex: Female

DRUGS (29)
  1. OXERVATE [Suspect]
     Active Substance: CENEGERMIN-BKBJ
     Indication: Product used for unknown indication
     Route: 047
  2. PREDNISOLONE [Concomitant]
     Active Substance: PREDNISOLONE
  3. REFRESH OPTIVE [Concomitant]
     Active Substance: CARBOXYMETHYLCELLULOSE SODIUM\GLYCERIN
  4. MAGNESIUM [MAGNESIUM MALATE] [Concomitant]
  5. MAGNESIUM [MAGNESIUM MALATE] [Concomitant]
  6. CHOLECALCIFEROL [Concomitant]
     Active Substance: CHOLECALCIFEROL
  7. ZINCO [ZINC] [Concomitant]
  8. FLAXSEED [Concomitant]
     Active Substance: FLAX SEED
  9. VITAMIN C FORMULA [Concomitant]
  10. COENZYME Q10 [TOCOPHERYL ACETATE;UBIDECARENONE] [Concomitant]
  11. MULTIVITAMIN MULTIMINERAL [Concomitant]
  12. FISH OIL [Concomitant]
     Active Substance: FISH OIL
  13. MOXIFLOXACIN HYDROCHLORIDE [Concomitant]
     Active Substance: MOXIFLOXACIN HYDROCHLORIDE
  14. PREDNISOLONE ACETATE [Concomitant]
     Active Substance: PREDNISOLONE ACETATE
  15. PREDNISOLONE ACETATE [Concomitant]
     Active Substance: PREDNISOLONE ACETATE
  16. VALACYCLOVIR HYDROCHLORIDE [Concomitant]
     Active Substance: VALACYCLOVIR HYDROCHLORIDE
  17. TESTOSTERONE [TESTOSTERONE CIPIONATE] [Concomitant]
  18. ESTRADIOL BUTYRYLACETATE [Concomitant]
  19. PROGESTERONE [Concomitant]
     Active Substance: PROGESTERONE
  20. FINASTERIDE BAILLEUL [Concomitant]
  21. UNSPECIFIED INGREDIENT [Concomitant]
     Active Substance: UNSPECIFIED INGREDIENT
  22. CELECOXIB [Concomitant]
     Active Substance: CELECOXIB
  23. DULOXETINE HYDROCHLORIDE [Concomitant]
     Active Substance: DULOXETINE HYDROCHLORIDE
  24. GABAPENTIN GA [Concomitant]
  25. ZETIA [Concomitant]
     Active Substance: EZETIMIBE
  26. ALPRAZOLAM [Concomitant]
     Active Substance: ALPRAZOLAM
  27. METHOCARBAMOL H A [Concomitant]
  28. UNSPECIFIED INGREDIENT [Concomitant]
     Active Substance: UNSPECIFIED INGREDIENT
  29. BUTABARBITAL SODIUM [Concomitant]
     Active Substance: BUTABARBITAL SODIUM

REACTIONS (8)
  - Ocular discomfort [Unknown]
  - Eye pain [Unknown]
  - Photophobia [Unknown]
  - Sinusitis [Unknown]
  - Eye swelling [Unknown]
  - Eyelid pain [Not Recovered/Not Resolved]
  - Periorbital pain [Not Recovered/Not Resolved]
  - Eyelid irritation [Not Recovered/Not Resolved]
